FAERS Safety Report 4505812-1 (Version None)
Quarter: 2004Q4

REPORT INFORMATION
  Report Type: 
  Country: None (occurrence: None)
  Receive Date: 20041119
  Receipt Date: 20041116
  Transmission Date: 20050328
  Serious: Yes (Other)
  Sender: FDA-Public Use
  Company Number: US-JNJFOC-20041104167

PATIENT
  Age: 59 Year
  Sex: Male

DRUGS (1)
  1. SPORANOX [Suspect]
     Indication: ASPERGILLOSIS
     Route: 049

REACTIONS (2)
  - DEEP VEIN THROMBOSIS [None]
  - PULMONARY EMBOLISM [None]
